FAERS Safety Report 8155388-5 (Version None)
Quarter: 2012Q1

REPORT INFORMATION
  Report Type: 
  Country: None (occurrence: None)
  Receive Date: 20120222
  Receipt Date: 20120215
  Transmission Date: 20120608
  Serious: Yes (Life-Threatening)
  Sender: FDA-Public Use
  Company Number: KW-BRISTOL-MYERS SQUIBB COMPANY-16406142

PATIENT
  Sex: Male

DRUGS (1)
  1. METFORMIN HCL [Suspect]

REACTIONS (8)
  - HAEMOLYTIC ANAEMIA [None]
  - LACTIC ACIDOSIS [None]
  - OVERDOSE [None]
  - CARDIAC ARREST [None]
  - TACHYPNOEA [None]
  - ABDOMINAL PAIN [None]
  - PANCREATITIS [None]
  - VOMITING [None]
